FAERS Safety Report 16458838 (Version 1)
Quarter: 2019Q2

REPORT INFORMATION
  Report Type: Spontaneous
  Country: US (occurrence: US)
  Receive Date: 20190620
  Receipt Date: 20190620
  Transmission Date: 20190711
  Serious: No
  Sender: FDA-Public Use
  Company Number: US-THERAPEUTICSMD-2019TMD01005

PATIENT
  Sex: Female

DRUGS (3)
  1. UNSPECIFIED STEROID FOR LICHEN PSORIASIS [Suspect]
     Active Substance: UNSPECIFIED INGREDIENT
     Indication: LICHEN SCLEROSUS
     Dosage: UNK
  2. IMVEXXY [Suspect]
     Active Substance: ESTRADIOL
     Dosage: UNK
     Route: 067
     Dates: start: 2018, end: 201905
  3. IMVEXXY [Suspect]
     Active Substance: ESTRADIOL
     Dosage: UNK
     Route: 067
     Dates: start: 20190514, end: 201905

REACTIONS (2)
  - Lichen sclerosus [Not Recovered/Not Resolved]
  - Vulvovaginal pruritus [Not Recovered/Not Resolved]
